FAERS Safety Report 5402052-9 (Version None)
Quarter: 2007Q3

REPORT INFORMATION
  Report Type: 
  Country: None (occurrence: None)
  Receive Date: 20070727
  Receipt Date: 20070717
  Transmission Date: 20080115
  Serious: Yes (Hospitalization)
  Sender: FDA-Public Use
  Company Number: 39183

PATIENT
  Age: 7 Year
  Sex: Female

DRUGS (1)
  1. CYTARABINE [Suspect]
     Indication: ACUTE LEUKAEMIA
     Dosage: 70 MG/INTRATHECAL
     Route: 037

REACTIONS (7)
  - APHASIA [None]
  - CEREBROVASCULAR SPASM [None]
  - ENCEPHALOPATHY [None]
  - HALLUCINATION, VISUAL [None]
  - INCONTINENCE [None]
  - MUSCULAR WEAKNESS [None]
  - SCREAMING [None]
